FAERS Safety Report 9182481 (Version 1)
Quarter: 2013Q1

REPORT INFORMATION
  Report Type: Spontaneous
  Country: US (occurrence: US)
  Receive Date: 20130322
  Receipt Date: 20130322
  Transmission Date: 20140127
  Serious: Yes (Life-Threatening)
  Sender: FDA-Public Use
  Company Number: US-BRISTOL-MYERS SQUIBB COMPANY-16773426

PATIENT
  Sex: 0

DRUGS (3)
  1. ERBITUX [Suspect]
     Indication: HEAD AND NECK CANCER
  2. CISPLATIN [Suspect]
     Indication: HEAD AND NECK CANCER
  3. 5-FLUOROURACIL [Suspect]
     Indication: HEAD AND NECK CANCER

REACTIONS (1)
  - Malignant neoplasm progression [Unknown]
